FAERS Safety Report 7051657-0 (Version None)
Quarter: 2010Q4

REPORT INFORMATION
  Report Type: 
  Country: None (occurrence: None)
  Receive Date: 20101018
  Receipt Date: 20101018
  Transmission Date: 20110411
  Serious: Yes (Other)
  Sender: FDA-Public Use
  Company Number: None

PATIENT
  Age: 66 Year
  Sex: Female
  Weight: 70.3075 kg

DRUGS (1)
  1. TOPIRAMATE [Suspect]
     Indication: COMPLICATED MIGRAINE
     Dosage: 1 TABLET TWICE DAILY PO
     Route: 048
     Dates: start: 20100228, end: 20100306

REACTIONS (4)
  - DISEASE RECURRENCE [None]
  - MIGRAINE [None]
  - PRODUCT SUBSTITUTION ISSUE [None]
  - VERTIGO [None]
